FAERS Safety Report 8435490-0 (Version None)
Quarter: 2012Q2

REPORT INFORMATION
  Report Type: 
  Country: None (occurrence: None)
  Receive Date: 20120614
  Receipt Date: 20120606
  Transmission Date: 20120825
  Serious: No
  Sender: FDA-Public Use
  Company Number: US-BAYER-2012-056781

PATIENT
  Sex: Female

DRUGS (2)
  1. MIRENA [Suspect]
     Indication: MENSTRUATION IRREGULAR
  2. MIRENA [Suspect]
     Indication: MENORRHAGIA
     Dosage: 20 MCG/24HR, CONT
     Route: 015
     Dates: start: 20101201, end: 20120507

REACTIONS (9)
  - PANIC ATTACK [None]
  - GASTROINTESTINAL DISORDER [None]
  - WEIGHT INCREASED [None]
  - BACK PAIN [None]
  - BLOOD PRESSURE ABNORMAL [None]
  - DEPRESSION [None]
  - DIZZINESS [None]
  - AMENORRHOEA [None]
  - OVARIAN CYST [None]
